FAERS Safety Report 19820367 (Version 1)
Quarter: 2021Q3

REPORT INFORMATION
  Report Type: Spontaneous
  Country: ES (occurrence: ES)
  Receive Date: 20210913
  Receipt Date: 20210913
  Transmission Date: 20211014
  Serious: Yes (Life-Threatening, Other)
  Sender: FDA-Public Use
  Company Number: ES-AUROBINDO-AUR-APL-2021-038474

PATIENT
  Age: 50 Year
  Sex: Male

DRUGS (3)
  1. MIRAPEXIN [Concomitant]
     Active Substance: PRAMIPEXOLE
     Indication: PARKINSONISM
     Dosage: UNK
     Route: 048
     Dates: start: 2017
  2. ENTACAPON [Suspect]
     Active Substance: ENTACAPONE
     Indication: PARKINSONISM
     Dosage: 200 MILLIGRAM (5 HOUR)
     Route: 048
     Dates: start: 20210805
  3. AZILECT [Suspect]
     Active Substance: RASAGILINE MESYLATE
     Indication: PARKINSONISM
     Dosage: 1 MILLIGRAM, ONCE A DAY
     Route: 048
     Dates: start: 2017

REACTIONS (1)
  - Acute myocardial infarction [Recovering/Resolving]

NARRATIVE: CASE EVENT DATE: 20210813
